FAERS Safety Report 25104379 (Version 1)
Quarter: 2025Q1

REPORT INFORMATION
  Report Type: Spontaneous
  Country: US (occurrence: US)
  Receive Date: 20250321
  Receipt Date: 20250321
  Transmission Date: 20250409
  Serious: Yes (Other)
  Sender: AZURITY PHARMACEUTICALS
  Company Number: US-AZURITY PHARMACEUTICALS, INC.-AZR202501-000454

PATIENT
  Age: 73 Year
  Sex: Male

DRUGS (14)
  1. VIVIMUSTA [Suspect]
     Active Substance: BENDAMUSTINE HYDROCHLORIDE
     Indication: Lymphoma
     Route: 065
     Dates: start: 202408
  2. VIVIMUSTA [Suspect]
     Active Substance: BENDAMUSTINE HYDROCHLORIDE
     Route: 065
     Dates: start: 20240815
  3. VIVIMUSTA [Suspect]
     Active Substance: BENDAMUSTINE HYDROCHLORIDE
     Route: 065
     Dates: start: 20240912
  4. VIVIMUSTA [Suspect]
     Active Substance: BENDAMUSTINE HYDROCHLORIDE
     Route: 065
     Dates: start: 20241010
  5. VIVIMUSTA [Suspect]
     Active Substance: BENDAMUSTINE HYDROCHLORIDE
     Route: 065
     Dates: start: 20241107
  6. VIVIMUSTA [Suspect]
     Active Substance: BENDAMUSTINE HYDROCHLORIDE
     Route: 065
     Dates: start: 20241226
  7. VIVIMUSTA [Suspect]
     Active Substance: BENDAMUSTINE HYDROCHLORIDE
     Route: 065
     Dates: start: 20250123
  8. RITUXIMAB [Suspect]
     Active Substance: RITUXIMAB
     Indication: Lymphoma
     Route: 065
     Dates: start: 202408
  9. RITUXIMAB [Suspect]
     Active Substance: RITUXIMAB
     Route: 065
     Dates: start: 20240815
  10. RITUXIMAB [Suspect]
     Active Substance: RITUXIMAB
     Route: 065
     Dates: start: 20240912
  11. RITUXIMAB [Suspect]
     Active Substance: RITUXIMAB
     Route: 065
     Dates: start: 20241010
  12. RITUXIMAB [Suspect]
     Active Substance: RITUXIMAB
     Route: 065
     Dates: start: 20241107
  13. RITUXIMAB [Suspect]
     Active Substance: RITUXIMAB
     Route: 065
     Dates: start: 20241226
  14. RITUXIMAB [Suspect]
     Active Substance: RITUXIMAB
     Route: 065
     Dates: start: 20250123

REACTIONS (3)
  - Neutropenia [Recovered/Resolved]
  - Intercepted product administration error [Unknown]
  - Product preparation error [Unknown]
